FAERS Safety Report 4276706-4 (Version None)
Quarter: 2004Q1

REPORT INFORMATION
  Report Type: 
  Country: None (occurrence: None)
  Receive Date: 20040121
  Receipt Date: 20040121
  Transmission Date: 20041129
  Serious: Yes (Other)
  Sender: FDA-Public Use
  Company Number: None

PATIENT
  Sex: Female
  Weight: 46.2669 kg

DRUGS (2)
  1. PAXIL CR [Suspect]
     Indication: ANXIETY
     Dosage: 1 TABLET DAILY ORAL
     Route: 048
     Dates: start: 20031015, end: 20040113
  2. PAXIL CR [Suspect]
     Indication: DEPRESSION
     Dosage: 1 TABLET DAILY ORAL
     Route: 048
     Dates: start: 20031015, end: 20040113

REACTIONS (5)
  - DRUG WITHDRAWAL SYNDROME [None]
  - HALLUCINATION [None]
  - IRRITABILITY [None]
  - MOOD SWINGS [None]
  - MUSCLE SPASMS [None]
